FAERS Safety Report 9507823 (Version 2)
Quarter: 2013Q3

REPORT INFORMATION
  Report Type: Spontaneous
  Country: GB (occurrence: GB)
  Receive Date: 20130909
  Receipt Date: 20130925
  Transmission Date: 20140515
  Serious: Yes (Hospitalization)
  Sender: FDA-Public Use
  Company Number: GB-PFIZER INC-2013254127

PATIENT
  Age: 66 Year
  Sex: Male

DRUGS (2)
  1. ALFUZOSIN [Suspect]
     Indication: BLADDER DISORDER
     Dosage: 1 DOSE FORM AT NIGHT
     Route: 048
     Dates: start: 20130802
  2. TAMSULOSIN [Suspect]
     Indication: BLADDER DISORDER
     Dosage: 400 MG, 1X/DAY
     Route: 048
     Dates: start: 20130723

REACTIONS (1)
  - Hypotension [Recovered/Resolved]
